FAERS Safety Report 8163463-4 (Version None)
Quarter: 2012Q1

REPORT INFORMATION
  Report Type: 
  Country: None (occurrence: None)
  Receive Date: 20120224
  Receipt Date: 20120220
  Transmission Date: 20120608
  Serious: Yes (Other)
  Sender: FDA-Public Use
  Company Number: JP-JNJFOC-20120205511

PATIENT
  Age: 85 Year
  Sex: Male

DRUGS (7)
  1. GALANTAMINE HYDROBROMIDE [Suspect]
     Indication: PRODUCT USED FOR UNKNOWN INDICATION
     Route: 048
  2. TORSEMIDE [Concomitant]
     Route: 048
  3. METHYCOBAL [Concomitant]
     Route: 065
  4. ALLOPURINOL [Concomitant]
     Route: 048
  5. GALANTAMINE HYDROBROMIDE [Suspect]
     Route: 048
  6. SERMION [Concomitant]
     Route: 048
  7. NORVASC [Concomitant]
     Route: 048

REACTIONS (3)
  - GASTROENTERITIS NOROVIRUS [None]
  - GASTRIC ULCER HAEMORRHAGE [None]
  - HAEMATOCHEZIA [None]
